FAERS Safety Report 6898420-9 (Version None)
Quarter: 2010Q3

REPORT INFORMATION
  Report Type: 
  Country: None (occurrence: None)
  Receive Date: 20100802
  Receipt Date: 20071011
  Transmission Date: 20110219
  Serious: No
  Sender: FDA-Public Use
  Company Number: US-PFIZER INC-2007085608

PATIENT
  Sex: Female
  Weight: 72.6 kg

DRUGS (14)
  1. LYRICA [Suspect]
     Indication: DIABETIC NEUROPATHY
     Dates: start: 20071007
  2. LYRICA [Suspect]
     Indication: FIBROMYALGIA
  3. BYETTA [Concomitant]
     Indication: DIABETES MELLITUS
  4. LANTUS [Concomitant]
     Indication: DIABETES MELLITUS
  5. IBUPROFEN [Concomitant]
     Indication: ARTHRALGIA
  6. IBUPROFEN [Concomitant]
     Indication: PAIN IN EXTREMITY
  7. IBUPROFEN [Concomitant]
     Indication: BACK PAIN
  8. ADVIL LIQUI-GELS [Concomitant]
     Indication: ARTHRALGIA
  9. ADVIL LIQUI-GELS [Concomitant]
     Indication: PAIN IN EXTREMITY
  10. ADVIL LIQUI-GELS [Concomitant]
     Indication: BACK PAIN
  11. DARVOCET [Concomitant]
     Indication: ARTHRALGIA
  12. DARVOCET [Concomitant]
     Indication: PAIN IN EXTREMITY
  13. DARVOCET [Concomitant]
     Indication: BACK PAIN
  14. AMBIEN [Concomitant]

REACTIONS (5)
  - DIZZINESS [None]
  - FEELING ABNORMAL [None]
  - HEADACHE [None]
  - INSOMNIA [None]
  - NAUSEA [None]
